FAERS Safety Report 9381461 (Version 1)
Quarter: 2013Q3

REPORT INFORMATION
  Report Type: Spontaneous
  Country: US (occurrence: US)
  Receive Date: 20130703
  Receipt Date: 20130703
  Transmission Date: 20140515
  Serious: No
  Sender: FDA-Public Use
  Company Number: US-PFIZER INC-2013193291

PATIENT
  Age: 56 Year
  Sex: Female
  Weight: 69.84 kg

DRUGS (1)
  1. LEVOTHYROXINE SODIUM [Suspect]
     Indication: HYPOTHYROIDISM
     Dosage: UNK

REACTIONS (2)
  - Dyspepsia [Unknown]
  - Malaise [Unknown]
